FAERS Safety Report 6144409-7 (Version None)
Quarter: 2009Q2

REPORT INFORMATION
  Report Type: 
  Country: None (occurrence: None)
  Receive Date: 20090401
  Receipt Date: 20090319
  Transmission Date: 20091009
  Serious: Yes (Death, Other)
  Sender: FDA-Public Use
  Company Number: 2008MB000106

PATIENT
  Age: 74 Year
  Sex: Male

DRUGS (3)
  1. CEPHALEXIN [Suspect]
     Indication: URINARY TRACT INFECTION
     Dosage: ; PO
     Route: 048
  2. GENTAMICIN [Concomitant]
  3. CEFUROXIME [Concomitant]

REACTIONS (1)
  - MULTIPLE SYSTEM ATROPHY [None]
